FAERS Safety Report 8774753 (Version 1)
Quarter: 2012Q4

REPORT INFORMATION
  Report Type: 
  Country: US (occurrence: US)
  Receive Date: 20120911
  Receipt Date: 20120911
  Transmission Date: 20130627
  Serious: Yes (Hospitalization, Other)
  Sender: FDA-Public Use
  Company Number: US-SANOFI-AVENTIS-2012SA063730

PATIENT
  Age: 79 Year
  Sex: Female

DRUGS (4)
  1. LANTUS [Suspect]
     Indication: TYPE II DIABETES MELLITUS
     Dosage: Dose:35 unit(s)
     Route: 058
     Dates: start: 2012
  2. SOLOSTAR [Suspect]
     Indication: TYPE II DIABETES MELLITUS
     Dates: start: 2012
  3. INSULIN [Concomitant]
  4. COUMADIN [Concomitant]

REACTIONS (9)
  - Cardiac operation [Unknown]
  - Arrhythmia [Unknown]
  - Cataract [Unknown]
  - Diarrhoea [Unknown]
  - Bronchitis [Unknown]
  - Choking [Unknown]
  - Nausea [Unknown]
  - Blood glucose increased [Recovering/Resolving]
  - Injection site bruising [Unknown]
